FAERS Safety Report 5007139-0 (Version None)
Quarter: 2006Q2

REPORT INFORMATION
  Report Type: 
  Country: None (occurrence: None)
  Receive Date: 20060519
  Receipt Date: 20060508
  Transmission Date: 20061013
  Serious: Yes (Other)
  Sender: FDA-Public Use
  Company Number: GB-MERCK-0605USA02208

PATIENT
  Age: 71 Year
  Sex: Male

DRUGS (2)
  1. PRINIVIL [Suspect]
     Indication: ANGIOPLASTY
     Route: 048
     Dates: start: 20051219, end: 20060329
  2. PRINIVIL [Suspect]
     Indication: MYOCARDIAL ISCHAEMIA
     Route: 048
     Dates: start: 20051219, end: 20060329

REACTIONS (2)
  - BLOOD CREATINE PHOSPHOKINASE INCREASED [None]
  - MYALGIA [None]
